FAERS Safety Report 10018671 (Version 1)
Quarter: 2014Q1

REPORT INFORMATION
  Report Type: Spontaneous
  Country: US (occurrence: US)
  Receive Date: 20140318
  Receipt Date: 20140318
  Transmission Date: 20141002
  Serious: No
  Sender: FDA-Public Use
  Company Number: US-GALDERMA-US13003679

PATIENT
  Sex: Female

DRUGS (9)
  1. VECTICAL (CALCITRIOL) OINTMENT 3 MCG/G [Suspect]
     Indication: PSORIASIS
     Dosage: 3 MCG/G
     Route: 061
     Dates: start: 201304, end: 20131114
  2. CLOBEX (CLOBETASOL PROPIONATE) SPRAY, 0.05% [Suspect]
     Indication: PSORIASIS
     Dosage: 0.05%
     Route: 061
     Dates: start: 201304, end: 20131114
  3. METFORMIN [Concomitant]
     Indication: DIABETES MELLITUS
     Dosage: 2000 MG
     Route: 048
  4. QUINAPRIL [Concomitant]
     Indication: HYPERTENSION
     Dosage: 10 MG
     Route: 048
  5. HCTZ (HYDROCHLOROHTIAZIDE) [Concomitant]
     Indication: HYPERTENSION
     Dosage: HALF TABLET
     Route: 048
  6. B COMPLEX VITAMINS [Concomitant]
     Indication: SUPPLEMENTATION THERAPY
     Route: 048
  7. BIOTIN [Concomitant]
     Indication: SUPPLEMENTATION THERAPY
     Route: 048
  8. GLUCOSAMINE [Concomitant]
     Indication: SUPPLEMENTATION THERAPY
     Route: 048
  9. CALCIUM [Concomitant]
     Indication: SUPPLEMENTATION THERAPY
     Route: 048

REACTIONS (5)
  - Carpal tunnel syndrome [Not Recovered/Not Resolved]
  - Hypoaesthesia [Not Recovered/Not Resolved]
  - Erythema [Not Recovered/Not Resolved]
  - Skin burning sensation [Not Recovered/Not Resolved]
  - Condition aggravated [Not Recovered/Not Resolved]
